FAERS Safety Report 9866873 (Version 1)
Quarter: 2014Q1

REPORT INFORMATION
  Report Type: Spontaneous
  Country: US (occurrence: None)
  Receive Date: 20140203
  Receipt Date: 20140203
  Transmission Date: 20141002
  Serious: Yes (Hospitalization)
  Sender: FDA-Public Use
  Company Number: None

PATIENT
  Age: 42 Year
  Sex: Male
  Weight: 99.79 kg

DRUGS (1)
  1. STELARA [Suspect]
     Indication: PSORIASIS
     Dosage: INJECTION EVERY 3 MONTHS INTO THE MUSCLE
     Route: 030

REACTIONS (15)
  - Psoriasis [None]
  - Disease recurrence [None]
  - Feeling abnormal [None]
  - Pain in extremity [None]
  - Photopsia [None]
  - Heart rate increased [None]
  - Gait disturbance [None]
  - Confusional state [None]
  - Vision blurred [None]
  - Tremor [None]
  - Panic attack [None]
  - Headache [None]
  - Drug ineffective [None]
  - Sneezing [None]
  - Lymphadenopathy [None]
